FAERS Safety Report 12047220 (Version 3)
Quarter: 2016Q1

REPORT INFORMATION
  Report Type: Spontaneous
  Country: FR (occurrence: FR)
  Receive Date: 20160208
  Receipt Date: 20160315
  Transmission Date: 20160526
  Serious: Yes (Death, Hospitalization)
  Sender: FDA-Public Use
  Company Number: FR-ROCHE-1706438

PATIENT
  Age: 44 Year
  Sex: Male

DRUGS (3)
  1. ZELBORAF [Suspect]
     Active Substance: VEMURAFENIB
     Indication: METASTATIC MALIGNANT MELANOMA
     Dosage: 4 TABLES OF 240 MG TWICE/DAY (MORNING AND EVENING)
     Route: 048
     Dates: start: 20151207, end: 20160126
  2. COTELLIC [Suspect]
     Active Substance: COBIMETINIB
     Indication: METASTATIC MALIGNANT MELANOMA
     Dosage: 3 TABLETS PER DAY
     Route: 048
     Dates: start: 20160106, end: 20160126
  3. ZELBORAF [Suspect]
     Active Substance: VEMURAFENIB
     Dosage: 4 TABLES OF 240 MG TWICE/DAY (MORNING AND EVENING)
     Route: 048

REACTIONS (8)
  - Metastatic malignant melanoma [Fatal]
  - Cholestasis [Recovering/Resolving]
  - Blood alkaline phosphatase increased [Recovering/Resolving]
  - Alanine aminotransferase increased [Recovering/Resolving]
  - Hepatocellular injury [Recovering/Resolving]
  - Gamma-glutamyltransferase increased [Recovering/Resolving]
  - Aspartate aminotransferase increased [Recovering/Resolving]
  - Blood bilirubin increased [Recovering/Resolving]

NARRATIVE: CASE EVENT DATE: 20160124
